FAERS Safety Report 23266274 (Version 1)
Quarter: 2023Q4

REPORT INFORMATION
  Report Type: Spontaneous
  Country: US (occurrence: US)
  Receive Date: 20231206
  Receipt Date: 20231206
  Transmission Date: 20240109
  Serious: Yes (Other)
  Sender: FDA-Public Use
  Company Number: US-drreddys-LIT/USA/23/0187945

PATIENT
  Age: 83 Year
  Sex: Male

DRUGS (1)
  1. FONDAPARINUX SODIUM [Suspect]
     Active Substance: FONDAPARINUX SODIUM
     Indication: Anticoagulant therapy
     Dosage: FOR 3 DAYS
     Route: 058
     Dates: start: 202302

REACTIONS (2)
  - Bullous haemorrhagic dermatosis [Recovering/Resolving]
  - Disease recurrence [Recovering/Resolving]
